FAERS Safety Report 10515000 (Version 2)
Quarter: 2014Q4

REPORT INFORMATION
  Report Type: Spontaneous
  Country: US (occurrence: US)
  Receive Date: 20141013
  Receipt Date: 20141110
  Transmission Date: 20150528
  Serious: Yes (Life-Threatening, Hospitalization, Other)
  Sender: FDA-Public Use
  Company Number: US-009507513-1410USA003474

PATIENT
  Sex: Female

DRUGS (2)
  1. LOSARTAN POTASSIUM TABLETS [Suspect]
     Active Substance: LOSARTAN POTASSIUM
     Indication: HYPERTENSION
     Route: 048
  2. COZAAR [Suspect]
     Active Substance: LOSARTAN POTASSIUM
     Indication: HYPERTENSION
     Dosage: 100 MG, QD(ONCE DAILY)
     Route: 048
     Dates: start: 201310

REACTIONS (9)
  - Endometriosis [Unknown]
  - Ovarian adhesion [Unknown]
  - Amenorrhoea [Recovering/Resolving]
  - Hysterectomy [Recovering/Resolving]
  - Fallopian tube cyst [Unknown]
  - Uterine leiomyoma [Recovering/Resolving]
  - Procedural haemorrhage [Recovering/Resolving]
  - Cervicitis [Unknown]
  - Uterine cervical squamous metaplasia [Unknown]

NARRATIVE: CASE EVENT DATE: 20140926
